FAERS Safety Report 9669703 (Version 1)
Quarter: 2013Q4

REPORT INFORMATION
  Report Type: Spontaneous
  Country: JP (occurrence: JP)
  Receive Date: 20131105
  Receipt Date: 20131105
  Transmission Date: 20140711
  Serious: Yes (Other)
  Sender: FDA-Public Use
  Company Number: JP-ELI_LILLY_AND_COMPANY-JP201310009106

PATIENT
  Age: 69 Year
  Sex: Female

DRUGS (4)
  1. CYMBALTA [Suspect]
     Indication: BIPOLAR I DISORDER
     Dosage: 20 MG, QD
     Route: 048
  2. LITHIUM [Concomitant]
     Indication: BIPOLAR I DISORDER
  3. SODIUM VALPROATE [Concomitant]
     Indication: BIPOLAR I DISORDER
  4. OLANZAPINE [Concomitant]
     Indication: BIPOLAR I DISORDER

REACTIONS (4)
  - Pneumonia [Unknown]
  - Serotonin syndrome [Recovered/Resolved]
  - Dizziness [Unknown]
  - Fall [Unknown]
